FAERS Safety Report 8391243-3 (Version None)
Quarter: 2012Q2

REPORT INFORMATION
  Report Type: 
  Country: None (occurrence: None)
  Receive Date: 20120529
  Receipt Date: 20120510
  Transmission Date: 20120825
  Serious: Yes (Hospitalization)
  Sender: FDA-Public Use
  Company Number: HU-JNJFOC-20120502755

PATIENT
  Sex: Male

DRUGS (4)
  1. PALIPERIDONE [Suspect]
     Route: 030
     Dates: start: 20120428
  2. SEROQUEL [Concomitant]
     Indication: SCHIZOPHRENIA
     Route: 048
     Dates: start: 20111215, end: 20120304
  3. PALIPERIDONE [Suspect]
     Indication: SCHIZOPHRENIA
     Route: 030
     Dates: start: 20120504
  4. PALIPERIDONE [Suspect]
     Indication: SCHIZOPHRENIA
     Route: 048
     Dates: start: 20120421, end: 20120422

REACTIONS (1)
  - SCHIZOPHRENIA [None]
